FAERS Safety Report 13178575 (Version 5)
Quarter: 2017Q2

REPORT INFORMATION
  Report Type: Report from Study
  Country: US (occurrence: US)
  Receive Date: 20170202
  Receipt Date: 20170614
  Transmission Date: 20170830
  Serious: No
  Sender: FDA-Public Use
  Company Number: PHEH2017US002477

PATIENT
  Sex: Female

DRUGS (1)
  1. COSENTYX [Suspect]
     Active Substance: SECUKINUMAB
     Indication: PSORIATIC ARTHROPATHY
     Dosage: 300 MG, QMO
     Route: 058

REACTIONS (15)
  - Onychomycosis [Unknown]
  - Arthralgia [Unknown]
  - Dry skin [Unknown]
  - Grip strength decreased [Unknown]
  - Memory impairment [Unknown]
  - Psoriatic arthropathy [Unknown]
  - Drug effect incomplete [Unknown]
  - Joint stiffness [Unknown]
  - Fatigue [Unknown]
  - Impaired healing [Unknown]
  - Malaise [Unknown]
  - Anxiety [Unknown]
  - Nail disorder [Unknown]
  - Eye disorder [Unknown]
  - Viral upper respiratory tract infection [Unknown]
